FAERS Safety Report 6646076-2 (Version None)
Quarter: 2010Q1

REPORT INFORMATION
  Report Type: 
  Country: None (occurrence: None)
  Receive Date: 20100323
  Receipt Date: 20100310
  Transmission Date: 20100710
  Serious: No
  Sender: FDA-Public Use
  Company Number: US-JNJFOC-20100303398

PATIENT
  Age: 54 Year
  Sex: Female
  Weight: 62.6 kg

DRUGS (9)
  1. FENTANYL-100 [Suspect]
     Indication: MUSCULOSKELETAL PAIN
     Dosage: NDC 0781-7243-55
     Route: 062
  2. FENTANYL-100 [Suspect]
     Route: 062
  3. FENTANYL-100 [Suspect]
     Indication: ABDOMINAL PAIN UPPER
     Dosage: NDC 0781-7243-55
     Route: 062
  4. FENTANYL-100 [Suspect]
     Route: 062
  5. FENTANYL-100 [Suspect]
     Indication: PAIN
     Dosage: NDC 0781-7243-55
     Route: 062
  6. FENTANYL-100 [Suspect]
     Route: 062
  7. FENTANYL CITRATE [Suspect]
     Indication: DRUG USE FOR UNKNOWN INDICATION
     Route: 062
  8. FENTANYL CITRATE [Suspect]
     Indication: MUSCULOSKELETAL PAIN
     Route: 062
  9. FENTANYL CITRATE [Suspect]
     Indication: ABDOMINAL PAIN UPPER
     Route: 062

REACTIONS (12)
  - ADVERSE DRUG REACTION [None]
  - AKATHISIA [None]
  - BONE PAIN [None]
  - CRYING [None]
  - DRUG INEFFECTIVE [None]
  - LACRIMATION INCREASED [None]
  - LETHARGY [None]
  - LOSS OF CONSCIOUSNESS [None]
  - MENTAL IMPAIRMENT [None]
  - NASOPHARYNGITIS [None]
  - PRODUCT QUALITY ISSUE [None]
  - WRONG TECHNIQUE IN DRUG USAGE PROCESS [None]
